FAERS Safety Report 5187160-2 (Version None)
Quarter: 2006Q4

REPORT INFORMATION
  Report Type: 
  Country: None (occurrence: None)
  Receive Date: 20061220
  Receipt Date: 20060925
  Transmission Date: 20070319
  Serious: No
  Sender: FDA-Public Use
  Company Number: US-AMGEN-US194814

PATIENT
  Sex: Female

DRUGS (1)
  1. ENBREL [Suspect]
     Indication: PSORIATIC ARTHROPATHY
     Route: 058
     Dates: start: 20060812

REACTIONS (6)
  - BACK PAIN [None]
  - CONTUSION [None]
  - FATIGUE [None]
  - HERPES ZOSTER [None]
  - MEMORY IMPAIRMENT [None]
  - NON-CARDIAC CHEST PAIN [None]
